FAERS Safety Report 9608199 (Version 2)
Quarter: 2013Q4

REPORT INFORMATION
  Report Type: Spontaneous
  Country: US (occurrence: US)
  Receive Date: 20131009
  Receipt Date: 20131009
  Transmission Date: 20140711
  Serious: No
  Sender: FDA-Public Use
  Company Number: US-PURDUE-USA-2012-0091696

PATIENT
  Age: 73 Year
  Sex: Female
  Weight: 38.55 kg

DRUGS (1)
  1. BUTRANS [Suspect]
     Indication: OSTEOARTHRITIS
     Dosage: 20 MCG, UNK
     Route: 062
     Dates: start: 20120628

REACTIONS (3)
  - Application site pruritus [Recovered/Resolved]
  - Application site erythema [Recovered/Resolved]
  - Application site vesicles [Recovered/Resolved]
